FAERS Safety Report 5367208-2 (Version None)
Quarter: 2007Q2

REPORT INFORMATION
  Report Type: 
  Country: None (occurrence: None)
  Receive Date: 20070622
  Receipt Date: 20070613
  Transmission Date: 20071010
  Serious: Yes (Other)
  Sender: FDA-Public Use
  Company Number: JP-ROCHE-481626

PATIENT
  Age: 68 Year
  Sex: Male
  Weight: 56 kg

DRUGS (5)
  1. TICLOPIDINE HCL [Suspect]
     Indication: CEREBRAL INFARCTION
     Route: 048
     Dates: start: 19981101
  2. YAKULT [Interacting]
     Indication: HYPERTENSION
     Route: 048
     Dates: end: 20050602
  3. ALFACALCIDOL [Interacting]
     Indication: DRUG USE FOR UNKNOWN INDICATION
     Route: 048
  4. AMLODIPINE BESYLATE [Interacting]
     Indication: DRUG USE FOR UNKNOWN INDICATION
     Route: 048
  5. DRINK NOS [Interacting]
     Indication: DRUG USE FOR UNKNOWN INDICATION
     Dosage: REPORTED AS: JAPANESE SAKE.
     Route: 048

REACTIONS (4)
  - BLOOD ALKALINE PHOSPHATASE INCREASED [None]
  - DRUG INTERACTION [None]
  - GAMMA-GLUTAMYLTRANSFERASE INCREASED [None]
  - HEPATOCELLULAR DAMAGE [None]
